FAERS Safety Report 9058448 (Version 1)
Quarter: 2013Q1

REPORT INFORMATION
  Report Type: Spontaneous
  Country: US (occurrence: None)
  Receive Date: 20130205
  Receipt Date: 20130205
  Transmission Date: 20140127
  Serious: Yes (Life-Threatening, Hospitalization, Disabling)
  Sender: FDA-Public Use
  Company Number: None

PATIENT
  Sex: Female
  Weight: 108.86 kg

DRUGS (1)
  1. BUPROPION [Suspect]
     Dosage: 300 MG SPORATICALLY PO
     Dates: start: 20110501, end: 20120601

REACTIONS (5)
  - Depressed mood [None]
  - Condition aggravated [None]
  - Abnormal behaviour [None]
  - Suicidal ideation [None]
  - Self-injurious ideation [None]
